FAERS Safety Report 9030989 (Version 3)
Quarter: 2013Q2

REPORT INFORMATION
  Report Type: Spontaneous
  Country: SE (occurrence: SE)
  Receive Date: 20130123
  Receipt Date: 20130621
  Transmission Date: 20140414
  Serious: Yes (Hospitalization, Other)
  Sender: FDA-Public Use
  Company Number: SE-VERTEX PHARMACEUTICALS INC.-2013-001013

PATIENT
  Age: 47 Year
  Sex: Male

DRUGS (5)
  1. INCIVO [Suspect]
     Indication: CHRONIC HEPATITIS C
     Dosage: 750 MG, TID
     Route: 065
     Dates: start: 20120220, end: 20120513
  2. COPEGUS [Suspect]
     Indication: CHRONIC HEPATITIS C
     Dosage: UNK
  3. COPEGUS [Suspect]
     Dosage: DOSAGE FORM: TABLET
     Dates: end: 20121230
  4. PEGASYS [Suspect]
     Indication: CHRONIC HEPATITIS C
     Dosage: DOSAGE FORM: INJECTION
     Route: 065
     Dates: end: 20121230
  5. PEGASYS [Suspect]
     Dosage: UNK

REACTIONS (1)
  - Hepatic failure [Unknown]
